FAERS Safety Report 8772806 (Version 2)
Quarter: 2012Q4

REPORT INFORMATION
  Report Type: 
  Country: US (occurrence: US)
  Receive Date: 20120907
  Receipt Date: 20121019
  Transmission Date: 20130627
  Serious: Yes (Hospitalization, Other)
  Sender: FDA-Public Use
  Company Number: US-PFIZER INC-2012217659

PATIENT
  Age: 65 Year
  Sex: Female
  Weight: 108 kg

DRUGS (10)
  1. NICOTROL INHALER [Suspect]
     Indication: SMOKING CESSATION THERAPY
     Dosage: 10 mg, UNK
     Route: 048
     Dates: start: 20120901, end: 20120903
  2. ALBUTEROL [Concomitant]
     Indication: ASTHMA
     Dosage: UNK,as needed
  3. PULMICORT [Concomitant]
     Indication: ASTHMA
     Dosage: UNK, as needed
  4. NORVASC [Concomitant]
     Indication: HYPERTENSION
     Dosage: UNK
  5. PARAFON FORTE [Concomitant]
     Dosage: UNK
  6. VITAMIN D [Concomitant]
     Dosage: UNK
  7. TYLENOL [Concomitant]
     Dosage: UNK
  8. NEURONTIN [Concomitant]
     Dosage: UNK
  9. LEVOTHYROXINE [Concomitant]
     Indication: HYPOTHYROIDISM
     Dosage: 50 ug, UNK
  10. COUMADIN [Concomitant]
     Dosage: UNK

REACTIONS (10)
  - Product quality issue [Unknown]
  - Dyspnoea [Unknown]
  - Chest discomfort [Recovered/Resolved]
  - Lung disorder [Unknown]
  - Oropharyngeal pain [Unknown]
  - Cough [Unknown]
  - Gait disturbance [Unknown]
  - Pneumonia [Unknown]
  - Oxygen saturation abnormal [Recovering/Resolving]
  - Blood glucose increased [Unknown]
